FAERS Safety Report 5723013-6 (Version None)
Quarter: 2008Q2

REPORT INFORMATION
  Report Type: 
  Country: None (occurrence: None)
  Receive Date: 20080423
  Receipt Date: 20071106
  Transmission Date: 20081010
  Serious: Yes (Hospitalization, Other)
  Sender: FDA-Public Use
  Company Number: 248018

PATIENT
  Age: 57 Year
  Sex: Female
  Weight: 82 kg

DRUGS (4)
  1. AVASTIN [Suspect]
     Indication: COLON CANCER
  2. IRINOTECAN HCL [Concomitant]
  3. FLUOROURACIL [Concomitant]
  4. LEUCOVORIN CALCIUM [Concomitant]

REACTIONS (1)
  - REVERSIBLE POSTERIOR LEUKOENCEPHALOPATHY SYNDROME [None]
